FAERS Safety Report 21926425 (Version 1)
Quarter: 2023Q1

REPORT INFORMATION
  Report Type: Spontaneous
  Country: US (occurrence: None)
  Receive Date: 20230130
  Receipt Date: 20230130
  Transmission Date: 20230418
  Serious: No
  Sender: FDA-Public Use
  Company Number: 2023A022420

PATIENT
  Sex: Female

DRUGS (3)
  1. OMEPRAZOLE [Suspect]
     Active Substance: OMEPRAZOLE
     Route: 048
  2. IBRANCE [Concomitant]
     Active Substance: PALBOCICLIB
     Route: 048
  3. XGEVA [Concomitant]
     Active Substance: DENOSUMAB
     Route: 065

REACTIONS (4)
  - Bone pain [Unknown]
  - Adverse event [Unknown]
  - Therapy interrupted [Unknown]
  - Myalgia [Unknown]
